FAERS Safety Report 6468491-2 (Version None)
Quarter: 2009Q4

REPORT INFORMATION
  Report Type: 
  Country: None (occurrence: None)
  Receive Date: 20091202
  Receipt Date: 20091202
  Transmission Date: 20100525
  Serious: Yes (Hospitalization)
  Sender: FDA-Public Use
  Company Number: None

PATIENT
  Sex: Female
  Weight: 56.6996 kg

DRUGS (7)
  1. LIPITOR [Suspect]
     Indication: CARDIAC DISORDER
     Dosage: MOUTH
     Route: 048
     Dates: start: 20020101
  2. LIPITOR [Suspect]
     Indication: STENT PLACEMENT
     Dosage: MOUTH
     Route: 048
     Dates: start: 20020101
  3. LIPITOR [Suspect]
     Indication: CARDIAC DISORDER
     Dosage: MOUTH
     Route: 048
     Dates: start: 20090901
  4. LIPITOR [Suspect]
     Indication: STENT PLACEMENT
     Dosage: MOUTH
     Route: 048
     Dates: start: 20090901
  5. ASPIRIN [Concomitant]
  6. PLAVIX [Concomitant]
  7. COUMADIN [Concomitant]

REACTIONS (1)
  - AMNESIA [None]
